FAERS Safety Report 5089711-5 (Version None)
Quarter: 2006Q3

REPORT INFORMATION
  Report Type: 
  Country: None (occurrence: None)
  Receive Date: 20060823
  Receipt Date: 20060807
  Transmission Date: 20061208
  Serious: Yes (Other)
  Sender: FDA-Public Use
  Company Number: CHPA2006US07926

PATIENT
  Age: 65 Year
  Sex: Male
  Weight: 56.7 kg

DRUGS (1)
  1. NICOTINE [Suspect]
     Indication: SMOKING CESSATION THERAPY
     Dosage: 21 MG, QD, TRANSDERMAL
     Route: 062
     Dates: start: 20060803, end: 20060806

REACTIONS (2)
  - BLOOD PRESSURE DECREASED [None]
  - SLUGGISHNESS [None]
